FAERS Safety Report 14240618 (Version 2)
Quarter: 2017Q4

REPORT INFORMATION
  Report Type: Spontaneous
  Country: BR (occurrence: BR)
  Receive Date: 20171130
  Receipt Date: 20171206
  Transmission Date: 20180321
  Serious: Yes (Hospitalization, Other)
  Sender: FDA-Public Use
  Company Number: BR-PFIZER INC-2017508439

PATIENT
  Age: 62 Year
  Sex: Female

DRUGS (2)
  1. DOXORUBICIN HCL [Suspect]
     Active Substance: DOXORUBICIN HYDROCHLORIDE
     Indication: METASTASES TO LIVER
     Dosage: TRANSARTERIAL CHEMOEMBOLIZATION WITH IODIZED OIL MIXED WITH 50 MG DOXORUBICIN
  2. IODIZED OIL [Suspect]
     Active Substance: IODIZED OIL
     Indication: METASTASES TO LIVER
     Dosage: TRANSARTERIAL CHEMOEMBOLIZATION WITH IODIZED OIL MIXED WITH 50 MG DOXORUBICIN

REACTIONS (1)
  - Omental infarction [Recovering/Resolving]
